FAERS Safety Report 16376472 (Version 2)
Quarter: 2019Q3

REPORT INFORMATION
  Report Type: Spontaneous
  Country: JP (occurrence: JP)
  Receive Date: 20190531
  Receipt Date: 20190702
  Transmission Date: 20191004
  Serious: Yes (Life-Threatening, Hospitalization, Other)
  Sender: FDA-Public Use
  Company Number: JP-BRISTOL-MYERS SQUIBB COMPANY-BMS-2019-018048

PATIENT
  Age: 55 Year
  Sex: Female
  Weight: 65.1 kg

DRUGS (3)
  1. OPDIVO [Suspect]
     Active Substance: NIVOLUMAB
     Indication: PRODUCT USED FOR UNKNOWN INDICATION
     Dosage: 195 MILLIGRAM
     Route: 041
     Dates: start: 20170602, end: 20180817
  2. YERVOY [Suspect]
     Active Substance: IPILIMUMAB
     Indication: MALIGNANT MELANOMA
     Dosage: 200 MILLIGRAM
     Route: 041
     Dates: start: 20181015, end: 20181207
  3. OPDIVO [Suspect]
     Active Substance: NIVOLUMAB
     Indication: MALIGNANT MELANOMA
     Dosage: 80 MG, UNK
     Route: 041
     Dates: start: 20190118, end: 20190118

REACTIONS (5)
  - Interstitial lung disease [Recovered/Resolved]
  - Blood pressure decreased [Unknown]
  - Liver disorder [Not Recovered/Not Resolved]
  - Autoimmune hepatitis [Unknown]
  - Ileus [Recovered/Resolved]

NARRATIVE: CASE EVENT DATE: 20190208
